FAERS Safety Report 4443974-5 (Version None)
Quarter: 2004Q3

REPORT INFORMATION
  Report Type: 
  Country: None (occurrence: None)
  Receive Date: 20040729
  Receipt Date: 20030512
  Transmission Date: 20050211
  Serious: Yes (Other)
  Sender: FDA-Public Use
  Company Number: KII-2003-0010223

PATIENT
  Sex: Male

DRUGS (2)
  1. MS CONTIN [Suspect]
     Indication: PAIN
     Dosage: 200 MG, SEE TEXT,
  2. MORPHINE SULFATE [Suspect]
     Indication: PAIN
     Dosage: 90 MG,

REACTIONS (2)
  - DRUG ABUSER [None]
  - INADEQUATE ANALGESIA [None]
